FAERS Safety Report 6947992-4 (Version None)
Quarter: 2010Q3

REPORT INFORMATION
  Report Type: 
  Country: None (occurrence: None)
  Receive Date: 20100825
  Receipt Date: 20100813
  Transmission Date: 20110219
  Serious: Yes (Hospitalization, Other)
  Sender: FDA-Public Use
  Company Number: 010325

PATIENT
  Age: 78 Year
  Sex: Male

DRUGS (12)
  1. SAMSCA [Suspect]
     Indication: HYPONATRAEMIA
     Dosage: 15 MG, QD, ORAL
     Route: 048
     Dates: start: 20100607, end: 20100607
  2. FLUTICASONE W SALMETEROL (FLUTICASONE, SALMETEROL) [Concomitant]
  3. DILTIAZEM [Concomitant]
  4. DESVENLAFAXINE SUCCINATE [Concomitant]
  5. RANITIDINE [Concomitant]
  6. METOPROLOL SUCCINATE [Concomitant]
  7. METHYPREDNISOLONE (METHYPREDNISOLONE) [Concomitant]
  8. BISACODYL (BISACODYL) [Concomitant]
  9. NICOTINE [Concomitant]
  10. ENOXAPARIN SODIUM [Concomitant]
  11. DOCUSATE SODIUM (DOCUSATE SODIUM) [Concomitant]
  12. TIOTROPIUM BROMIDE (TIOTROPIUM BROMIDE) [Concomitant]

REACTIONS (5)
  - BLOOD GLUCOSE INCREASED [None]
  - BLOOD SODIUM INCREASED [None]
  - CONFUSIONAL STATE [None]
  - HYPERREFLEXIA [None]
  - MENTAL STATUS CHANGES [None]
